FAERS Safety Report 7146097-X (Version None)
Quarter: 2010Q4

REPORT INFORMATION
  Report Type: 
  Country: None (occurrence: None)
  Receive Date: 20101208
  Receipt Date: 20101202
  Transmission Date: 20110411
  Serious: Yes (Hospitalization, Other)
  Sender: FDA-Public Use
  Company Number: US-MERCK-0705USA04136

PATIENT
  Age: 66 Year
  Sex: Female

DRUGS (1)
  1. FOSAMAX [Suspect]
     Indication: OSTEITIS DEFORMANS
     Route: 048
     Dates: start: 19970101, end: 20070226

REACTIONS (58)
  - ACTINOMYCOSIS [None]
  - ANGIOPATHY [None]
  - AORTIC ANEURYSM [None]
  - APPENDIX DISORDER [None]
  - ARTHRITIS [None]
  - ARTHROPATHY [None]
  - BACK DISORDER [None]
  - BACK PAIN [None]
  - BONE DISORDER [None]
  - CATARACT [None]
  - CHEST PAIN [None]
  - DENTAL NECROSIS [None]
  - DERMAL CYST [None]
  - DIVERTICULUM INTESTINAL [None]
  - DIZZINESS [None]
  - EXOSTOSIS [None]
  - FATIGUE [None]
  - GASTROINTESTINAL DISORDER [None]
  - GLAUCOMA [None]
  - HYPERLIPIDAEMIA [None]
  - HYPERTENSIVE NEPHROPATHY [None]
  - INTERVERTEBRAL DISC DEGENERATION [None]
  - JAW DISORDER [None]
  - LETHARGY [None]
  - LUMBAR SPINAL STENOSIS [None]
  - MALAISE [None]
  - MEMORY IMPAIRMENT [None]
  - MOUTH ULCERATION [None]
  - MULTIPLE INJURIES [None]
  - MUSCLE SPASMS [None]
  - OEDEMA MOUTH [None]
  - ORAL PAIN [None]
  - ORAL TORUS [None]
  - OSTEITIS DEFORMANS [None]
  - OSTEOARTHRITIS [None]
  - OSTEOMYELITIS [None]
  - OSTEONECROSIS OF JAW [None]
  - PAIN [None]
  - PAIN IN EXTREMITY [None]
  - PARAESTHESIA [None]
  - PERIODONTITIS [None]
  - POST LAMINECTOMY SYNDROME [None]
  - PULPITIS DENTAL [None]
  - RADICULAR CYST [None]
  - RADICULITIS LUMBOSACRAL [None]
  - RENAL FAILURE CHRONIC [None]
  - SACROILIITIS [None]
  - SCIATICA [None]
  - SEBORRHOEIC KERATOSIS [None]
  - SIALOADENITIS [None]
  - SOMNOLENCE [None]
  - SPINAL COLUMN STENOSIS [None]
  - SPINAL DISORDER [None]
  - SPINAL OSTEOARTHRITIS [None]
  - TOOTH LOSS [None]
  - TRANSIENT ISCHAEMIC ATTACK [None]
  - URINARY TRACT INFECTION [None]
  - VOMITING [None]
